FAERS Safety Report 8914577 (Version 1)
Quarter: 2012Q4

REPORT INFORMATION
  Report Type: 
  Country: FI (occurrence: FI)
  Receive Date: 20121119
  Receipt Date: 20121119
  Transmission Date: 20130627
  Serious: Yes (Other)
  Sender: FDA-Public Use
  Company Number: FI-AMGEN-FINSP2012073660

PATIENT
  Age: 36 Year
  Sex: Female

DRUGS (1)
  1. PROLIA [Suspect]
     Indication: OSTEOPOROSIS
     Dosage: 60 mg, UNK
     Route: 058
     Dates: start: 20120823

REACTIONS (2)
  - Haemorrhage [Recovered/Resolved]
  - Urinary incontinence [Recovered/Resolved]
